FAERS Safety Report 4595148-5 (Version None)
Quarter: 2005Q1

REPORT INFORMATION
  Report Type: 
  Country: None (occurrence: None)
  Receive Date: 20050224
  Receipt Date: 20050217
  Transmission Date: 20050727
  Serious: Yes (Death)
  Sender: FDA-Public Use
  Company Number: 05-02-0239

PATIENT
  Age: 32 Year
  Sex: Female

DRUGS (2)
  1. CLOZAPINE [Suspect]
     Indication: AFFECTIVE DISORDER
     Dosage: 300-600MG QD ORAL
     Route: 048
     Dates: start: 20020401, end: 20050101
  2. CLOZAPINE [Suspect]
     Indication: BIPOLAR DISORDER
     Dosage: 300-600MG QD ORAL
     Route: 048
     Dates: start: 20020401, end: 20050101

REACTIONS (3)
  - CHOKING [None]
  - FOREIGN BODY TRAUMA [None]
  - OBSTRUCTIVE AIRWAYS DISORDER [None]
